FAERS Safety Report 11743500 (Version 1)
Quarter: 2015Q4

REPORT INFORMATION
  Report Type: Spontaneous
  Country: US (occurrence: US)
  Receive Date: 20151116
  Receipt Date: 20151116
  Transmission Date: 20160304
  Serious: No
  Sender: FDA-Public Use
  Company Number: US-BAYER-2015-468723

PATIENT
  Age: 36 Year
  Sex: Female
  Weight: 117.91 kg

DRUGS (1)
  1. ALEVE [Suspect]
     Active Substance: NAPROXEN SODIUM
     Indication: MIGRAINE
     Dosage: 2 DF, PRN
     Dates: start: 2001

REACTIONS (1)
  - Product use issue [None]

NARRATIVE: CASE EVENT DATE: 2001
